FAERS Safety Report 4682145-4 (Version None)
Quarter: 2005Q2

REPORT INFORMATION
  Report Type: 
  Country: None (occurrence: None)
  Receive Date: 20050602
  Receipt Date: 20050520
  Transmission Date: 20051028
  Serious: Yes (Death)
  Sender: FDA-Public Use
  Company Number: 2005-05-0004

PATIENT
  Age: 71 Year
  Sex: Male

DRUGS (8)
  1. BECLOMETHASONE DIPROPIONATE [Suspect]
     Dosage: 200MCG INHALATION
     Route: 055
  2. SALBUTAMOL [Suspect]
     Dosage: 100MCG PRN INHALATION
     Route: 055
  3. SPIRIVA [Suspect]
     Dosage: 18.0 MCG INHALATION
     Route: 055
  4. MONTELUKAST SODIUM [Suspect]
     Dosage: 10MG NOCTE
  5. OXYGEN [Suspect]
     Dosage: 2L/MIN - 15HR
  6. SALMETEROL XINAFOATE [Suspect]
     Dosage: 25.0MICG/DOS INHALATION
     Route: 055
  7. SERETIDE [Suspect]
     Dosage: 125 2 PUFFS INHALATION
     Route: 055
  8. QUININE [Suspect]
     Dosage: 300MG PRN HS

REACTIONS (2)
  - CHRONIC OBSTRUCTIVE PULMONARY DISEASE [None]
  - DIARRHOEA [None]
